FAERS Safety Report 6087244-0 (Version None)
Quarter: 2009Q1

REPORT INFORMATION
  Report Type: 
  Country: None (occurrence: None)
  Receive Date: 20090219
  Receipt Date: 20090219
  Transmission Date: 20090719
  Serious: No
  Sender: FDA-Public Use
  Company Number: None

PATIENT
  Age: 33 Year
  Sex: Male
  Weight: 96.1626 kg

DRUGS (10)
  1. CLOZAPINE [Suspect]
     Dosage: 300MG DAY PO
     Route: 048
  2. GEMFIBROZIL [Concomitant]
  3. OMEPRAZOLE [Concomitant]
  4. ZYDIS [Concomitant]
  5. .. [Concomitant]
  6. DEPAKOTE [Concomitant]
  7. EZETIMBE [Concomitant]
  8. LORAZEPAM [Concomitant]
  9. LOVAZA [Concomitant]
  10. HALOPERIDOL [Concomitant]

REACTIONS (1)
  - WEIGHT DECREASED [None]
